FAERS Safety Report 7610788-4 (Version None)
Quarter: 2011Q3

REPORT INFORMATION
  Report Type: 
  Country: None (occurrence: None)
  Receive Date: 20110715
  Receipt Date: 20110712
  Transmission Date: 20111222
  Serious: Yes (Death, Hospitalization, Other)
  Sender: FDA-Public Use
  Company Number: PHFR2011GB03730

PATIENT
  Sex: Female

DRUGS (1)
  1. CLOZAPINE [Suspect]
     Indication: SCHIZOPHRENIA
     Route: 048
     Dates: start: 19990727

REACTIONS (5)
  - INFECTION [None]
  - BREAST CANCER [None]
  - FALL [None]
  - METASTATIC NEOPLASM [None]
  - BRAIN NEOPLASM MALIGNANT [None]
